FAERS Safety Report 9742741 (Version 1)
Quarter: 2013Q4

REPORT INFORMATION
  Report Type: Spontaneous
  Country: US (occurrence: US)
  Receive Date: 20131210
  Receipt Date: 20131210
  Transmission Date: 20140711
  Serious: No
  Sender: FDA-Public Use
  Company Number: US-GILEAD-2009-0025946

PATIENT
  Age: 76 Year
  Sex: Female

DRUGS (9)
  1. LETAIRIS [Suspect]
     Indication: PULMONARY ARTERIAL HYPERTENSION
     Route: 048
     Dates: start: 20090902, end: 20091210
  2. WARFARIN [Concomitant]
  3. ESTRADIOL [Concomitant]
  4. AMLODIPINE [Concomitant]
  5. METOPROLOL [Concomitant]
  6. REVATIO [Concomitant]
  7. KLOR-CON [Concomitant]
  8. OMEPRAZOLE [Concomitant]
  9. LEVOTHYROXINE [Concomitant]

REACTIONS (1)
  - Rash [Unknown]
